FAERS Safety Report 24794538 (Version 2)
Quarter: 2025Q1

REPORT INFORMATION
  Report Type: Spontaneous
  Country: US (occurrence: US)
  Receive Date: 20241231
  Receipt Date: 20250116
  Transmission Date: 20250409
  Serious: No
  Sender: ROCHE
  Company Number: US-ROCHE-10000167662

PATIENT
  Age: 5 Year
  Sex: Male
  Weight: 16.32 kg

DRUGS (4)
  1. ACTEMRA ACTPEN [Suspect]
     Active Substance: TOCILIZUMAB
     Indication: Still^s disease
     Dosage: STRENGTH: OF 0.9 ML/162 MG
     Route: 058
     Dates: start: 20241225
  2. ACTEMRA [Suspect]
     Active Substance: TOCILIZUMAB
     Indication: Product used for unknown indication
     Route: 058
  3. ACTEMRA [Suspect]
     Active Substance: TOCILIZUMAB
  4. PREDNISONE [Concomitant]
     Active Substance: PREDNISONE
     Indication: Gait inability
     Dosage: 5 ML A DAY FOR 14 DAYS
     Route: 048
     Dates: start: 20241219

REACTIONS (3)
  - Accidental exposure to product [Unknown]
  - No adverse event [Unknown]
  - Device use error [Unknown]

NARRATIVE: CASE EVENT DATE: 20241225
